FAERS Safety Report 14505792 (Version 1)
Quarter: 2018Q1

REPORT INFORMATION
  Report Type: Spontaneous
  Country: US (occurrence: US)
  Receive Date: 20180207
  Receipt Date: 20180207
  Transmission Date: 20180509
  Serious: Yes (Other)
  Sender: FDA-Public Use
  Company Number: None

PATIENT

DRUGS (1)
  1. APIXABAN [Suspect]
     Active Substance: APIXABAN

REACTIONS (11)
  - Dyspnoea [None]
  - Oedema [None]
  - Obesity [None]
  - Epistaxis [None]
  - Therapy change [None]
  - Blood urine present [None]
  - Atrial fibrillation [None]
  - Therapy cessation [None]
  - Fall [None]
  - Haematocrit decreased [None]
  - Haemoglobin decreased [None]
